FAERS Safety Report 5682883-0 (Version None)
Quarter: 2008Q1

REPORT INFORMATION
  Report Type: 
  Country: None (occurrence: None)
  Receive Date: 20080325
  Receipt Date: 20080318
  Transmission Date: 20080703
  Serious: Yes (Other)
  Sender: FDA-Public Use
  Company Number: CHPA2008US05037

PATIENT
  Sex: Female

DRUGS (1)
  1. TRANSDERM SCOP [Suspect]
     Dosage: TRANSDERMAL
     Route: 062

REACTIONS (2)
  - EXPIRED DRUG ADMINISTERED [None]
  - PSYCHOTIC DISORDER [None]
